FAERS Safety Report 18462199 (Version 1)
Quarter: 2020Q4

REPORT INFORMATION
  Report Type: Spontaneous
  Country: US (occurrence: US)
  Receive Date: 20201103
  Receipt Date: 20201103
  Transmission Date: 20210114
  Serious: Yes (Hospitalization)
  Sender: FDA-Public Use
  Company Number: None

PATIENT
  Sex: Female

DRUGS (12)
  1. HUMIRA [Suspect]
     Active Substance: ADALIMUMAB
     Indication: RHEUMATOID ARTHRITIS
     Dosage: ?          OTHER FREQUENCY:EVERY 14 DAYS;?
     Route: 058
     Dates: start: 20190719
  2. VITAMIN D3 [Concomitant]
     Active Substance: CHOLECALCIFEROL
  3. FAMOTIDINE. [Concomitant]
     Active Substance: FAMOTIDINE
  4. NEURONTIN [Concomitant]
     Active Substance: GABAPENTIN
  5. ZINC. [Concomitant]
     Active Substance: ZINC
  6. EPIPEN [Concomitant]
     Active Substance: EPINEPHRINE
  7. CITALOPRAM [Concomitant]
     Active Substance: CITALOPRAM HYDROBROMIDE
  8. CALCIUM [Concomitant]
     Active Substance: CALCIUM
  9. LOVASTATIN. [Concomitant]
     Active Substance: LOVASTATIN
  10. FOLIC ACID. [Concomitant]
     Active Substance: FOLIC ACID
  11. CHLORTHALIDE [Concomitant]
  12. MUPIROCIN. [Concomitant]
     Active Substance: MUPIROCIN

REACTIONS (7)
  - Mouth swelling [None]
  - Panic attack [None]
  - Asthma [None]
  - Migraine [None]
  - Malaise [None]
  - Pharyngeal swelling [None]
  - Condition aggravated [None]
